FAERS Safety Report 6665222-8 (Version None)
Quarter: 2010Q2

REPORT INFORMATION
  Report Type: 
  Country: None (occurrence: None)
  Receive Date: 20100402
  Receipt Date: 20100319
  Transmission Date: 20101027
  Serious: Yes (Other)
  Sender: FDA-Public Use
  Company Number: ES-ELI_LILLY_AND_COMPANY-ES201003006630

PATIENT
  Sex: Female
  Weight: 68 kg

DRUGS (11)
  1. FORTEO [Suspect]
     Indication: SPINAL FRACTURE
     Dosage: 20 UG, DAILY (1/D)
     Route: 058
     Dates: start: 20090202
  2. AMIODARONE HCL [Concomitant]
     Indication: VENTRICULAR HYPERTROPHY
     Dosage: 200 MG, DAILY (1/D)
     Route: 048
  3. DIGOXIN [Concomitant]
     Indication: VENTRICULAR HYPERTROPHY
     Dosage: 25 MG, 3/W
     Route: 048
  4. AMILORIDE HCL AND HYDROCHLOROTHIAZIDE [Concomitant]
     Indication: OEDEMA DUE TO CARDIAC DISEASE
     Dosage: 1 D/F, 3/W
     Route: 048
  5. SINTROM [Concomitant]
     Indication: EMBOLISM
     Dosage: 4 MG, DAILY (1/D)
     Route: 048
  6. PARACETAMOL [Concomitant]
     Indication: PAIN
     Dosage: 1 G, DAILY (1/D)
     Route: 048
  7. PULMICORT [Concomitant]
     Indication: BRONCHITIS
     Dosage: 1 D/F, EVERY 8 HRS
     Route: 055
  8. ATROVENT [Concomitant]
     Indication: BRONCHITIS
     Dosage: 1 D/F, EVERY 8 HRS
     Route: 055
  9. IDEOS                              /00944201/ [Concomitant]
     Indication: OSTEOPOROSIS
     Dosage: UNK, UNKNOWN
  10. TRANXILIUM [Concomitant]
     Indication: ANXIETY
     Dosage: UNK, UNKNOWN
  11. DAFLON [Concomitant]
     Indication: VARICOSE VEIN
     Dosage: UNK, UNKNOWN

REACTIONS (3)
  - HAEMATOMA [None]
  - OEDEMA PERIPHERAL [None]
  - OFF LABEL USE [None]
